FAERS Safety Report 25166465 (Version 1)
Quarter: 2025Q2

REPORT INFORMATION
  Report Type: Spontaneous
  Country: JP (occurrence: JP)
  Receive Date: 20250407
  Receipt Date: 20250407
  Transmission Date: 20250717
  Serious: Yes (Hospitalization)
  Sender: EMD SERONO INC
  Company Number: JP-Merck Healthcare KGaA-2025016413

PATIENT
  Age: 60 Year
  Weight: 104 kg

DRUGS (1)
  1. METGLUCO [Suspect]
     Active Substance: METFORMIN HYDROCHLORIDE
     Indication: Diabetes mellitus
     Dates: end: 20230913

REACTIONS (3)
  - Atrial fibrillation [Unknown]
  - Glomerular filtration rate decreased [Recovering/Resolving]
  - Glycosylated haemoglobin increased [Recovering/Resolving]

NARRATIVE: CASE EVENT DATE: 20221106
